FAERS Safety Report 9714373 (Version 2)
Quarter: 2013Q4

REPORT INFORMATION
  Report Type: Spontaneous
  Country: DE (occurrence: DE)
  Receive Date: 20131126
  Receipt Date: 20131223
  Transmission Date: 20140711
  Serious: Yes (Other)
  Sender: FDA-Public Use
  Company Number: DE-PFIZER INC-2013336653

PATIENT
  Age: 36 Year
  Sex: Female
  Weight: 58 kg

DRUGS (8)
  1. LAMOTRIGINE [Suspect]
     Indication: EPILEPSY
     Dosage: 300 MG/D (BEGINNING OF PREGNANCY AT 2X50MG AND IN THE END AT 2X150MG)
     Route: 048
     Dates: start: 20120211, end: 20121029
  2. EPIRUBICIN HCL [Suspect]
     Indication: BREAST CANCER
     Dosage: 156 MG TWICE DURING PREGNANCY 14.9 AND 05.10
     Route: 042
     Dates: start: 20120914, end: 20121005
  3. CYCLOPHOSPHAMIDE [Suspect]
     Indication: BREAST CANCER
     Dosage: 1040 MG TWICE DURING PREGNANCY 14.9 AND 05.10
     Route: 042
     Dates: start: 20120914, end: 20121005
  4. FOLSAURE [Concomitant]
     Indication: PROPHYLAXIS OF NEURAL TUBE DEFECT
     Dosage: 5 MG/DAY
     Route: 048
     Dates: start: 20120211, end: 20121029
  5. FILGRASTIM [Concomitant]
     Indication: CHEMOTHERAPY
     Dosage: UNK
     Route: 042
     Dates: start: 20120914, end: 20120914
  6. FILGRASTIM [Concomitant]
     Dosage: UNK
     Dates: start: 20121005, end: 20121005
  7. DEXAMETHASONE [Concomitant]
     Indication: PROPHYLAXIS OF NAUSEA AND VOMITING
     Dosage: TWICE DURING PREGNANCY 14.9. AND 05.10
     Dates: start: 20120914, end: 20121005
  8. ONDANSETRON [Concomitant]
     Indication: PROPHYLAXIS OF NAUSEA AND VOMITING
     Dosage: TWICE DURING PREGNANCY 14.9. AND 05.10.
     Dates: start: 20120914, end: 20121005

REACTIONS (2)
  - Invasive ductal breast carcinoma [Unknown]
  - Premature rupture of membranes [Unknown]
